FAERS Safety Report 11102538 (Version 3)
Quarter: 2015Q3

REPORT INFORMATION
  Report Type: Spontaneous
  Country: US (occurrence: US)
  Receive Date: 20150511
  Receipt Date: 20150710
  Transmission Date: 20151125
  Serious: Yes (Hospitalization)
  Sender: FDA-Public Use
  Company Number: US-BAYER-2015-200343

PATIENT
  Age: 24 Year
  Sex: Female
  Weight: 63.49 kg

DRUGS (5)
  1. HYDROCODONE [Concomitant]
     Active Substance: HYDROCODONE
     Route: 048
  2. MIRENA [Suspect]
     Active Substance: LEVONORGESTREL
     Indication: CONTRACEPTION
     Dosage: 20 MCG/24HR, CONT
     Route: 015
     Dates: start: 20080424, end: 20130809
  3. TRAMADOL. [Concomitant]
     Active Substance: TRAMADOL
  4. FLEXERIL [Concomitant]
     Active Substance: CYCLOBENZAPRINE HYDROCHLORIDE
     Route: 048
  5. PAXIL [Concomitant]
     Active Substance: PAROXETINE HYDROCHLORIDE

REACTIONS (5)
  - Uterine perforation [None]
  - Pelvic inflammatory disease [None]
  - Medical device pain [None]
  - Intentional device misuse [None]
  - Device issue [None]

NARRATIVE: CASE EVENT DATE: 2008
